FAERS Safety Report 8024097-5 (Version None)
Quarter: 2012Q1

REPORT INFORMATION
  Report Type: 
  Country: None (occurrence: None)
  Receive Date: 20120105
  Receipt Date: 20120104
  Transmission Date: 20120608
  Serious: Yes (Other)
  Sender: FDA-Public Use
  Company Number: US-JNJFOC-20111211205

PATIENT
  Sex: Female
  Weight: 70.76 kg

DRUGS (13)
  1. STEROIDS NOS [Suspect]
     Indication: RHEUMATOID ARTHRITIS
     Route: 065
     Dates: start: 20110524, end: 20110901
  2. PREMARIN [Concomitant]
     Indication: HORMONE REPLACEMENT THERAPY
     Route: 048
  3. CALCIUM ACETATE [Concomitant]
     Indication: NUTRITIONAL SUPPORT
     Route: 048
  4. MOBIC [Concomitant]
     Indication: PAIN
     Route: 048
     Dates: start: 20100101
  5. REMICADE [Suspect]
     Indication: RHEUMATOID ARTHRITIS
     Route: 042
     Dates: start: 20110524
  6. TRIAM [Concomitant]
     Indication: BLOOD PRESSURE
     Route: 048
  7. METHOTREXATE [Concomitant]
     Indication: RHEUMATOID ARTHRITIS
     Route: 048
     Dates: start: 20010101
  8. ARAVA [Concomitant]
     Indication: RHEUMATOID ARTHRITIS
     Route: 065
     Dates: start: 20040101, end: 20110501
  9. DIOVAN [Concomitant]
     Indication: BLOOD PRESSURE
     Route: 048
  10. DIAZEPAM [Concomitant]
     Indication: DIZZINESS
     Route: 048
  11. FISH OIL [Concomitant]
     Indication: NUTRITIONAL SUPPORT
     Route: 048
  12. FOLIC ACID [Concomitant]
     Indication: RHEUMATOID ARTHRITIS
     Route: 048
     Dates: start: 20010101
  13. VITAMIN D [Concomitant]
     Indication: NUTRITIONAL SUPPORT
     Route: 048

REACTIONS (13)
  - BODY FAT DISORDER [None]
  - SOMNOLENCE [None]
  - ABDOMINAL DISTENSION [None]
  - HEADACHE [None]
  - JOINT SWELLING [None]
  - DIZZINESS [None]
  - DYSPEPSIA [None]
  - EYE PAIN [None]
  - OEDEMA PERIPHERAL [None]
  - PAIN [None]
  - MUSCLE SPASMS [None]
  - DEPRESSION [None]
  - OROPHARYNGEAL PAIN [None]
